FAERS Safety Report 8876786 (Version 1)
Quarter: 2012Q4

REPORT INFORMATION
  Report Type: Spontaneous
  Country: US (occurrence: None)
  Receive Date: 20121024
  Receipt Date: 20121024
  Transmission Date: 20130627
  Serious: Yes (Hospitalization)
  Sender: FDA-Public Use
  Company Number: 2012-524

PATIENT
  Age: 48 Year
  Sex: Female

DRUGS (1)
  1. PRIALT [Suspect]
     Indication: PAIN
     Route: 037
     Dates: start: 20120905, end: 20120917

REACTIONS (5)
  - Radicular pain [None]
  - Functional gastrointestinal disorder [None]
  - Bladder dysfunction [None]
  - Burning sensation [None]
  - Drug ineffective [None]
